FAERS Safety Report 7726123-7 (Version None)
Quarter: 2011Q3

REPORT INFORMATION
  Report Type: 
  Country: None (occurrence: None)
  Receive Date: 20110902
  Receipt Date: 20110824
  Transmission Date: 20111222
  Serious: Yes (Other)
  Sender: FDA-Public Use
  Company Number: CA-JNJFOC-20110811113

PATIENT
  Sex: Male

DRUGS (10)
  1. ALLOPURINOL [Concomitant]
  2. PROPOXYPHENE HYDROCHLORIDE [Concomitant]
  3. REMICADE [Suspect]
     Indication: RHEUMATOID ARTHRITIS
     Route: 042
     Dates: end: 20100501
  4. ENBREL [Suspect]
     Indication: RHEUMATOID ARTHRITIS
     Route: 058
     Dates: start: 20031005
  5. PREDNISONE [Concomitant]
  6. MOMETASONE FUROATE [Concomitant]
  7. METHOTREXATE SODIUM [Concomitant]
  8. RABEPRAZOLE SODIUM [Concomitant]
  9. TELMISARTAN/HYDROCHLOROTHIAZIDE [Concomitant]
  10. CALCITONIN SALMON [Concomitant]

REACTIONS (3)
  - DEEP VEIN THROMBOSIS [None]
  - CONTUSION [None]
  - FALL [None]
